FAERS Safety Report 16081709 (Version 2)
Quarter: 2019Q2

REPORT INFORMATION
  Report Type: Spontaneous
  Country: PT (occurrence: PT)
  Receive Date: 20190316
  Receipt Date: 20190409
  Transmission Date: 20190711
  Serious: Yes (Other)
  Sender: FDA-Public Use
  Company Number: PHHY2019PT057309

PATIENT
  Age: 54 Year
  Sex: Female

DRUGS (5)
  1. IBUPROFEN. [Suspect]
     Active Substance: IBUPROFEN
     Indication: MYALGIA
  2. IBUPROFEN. [Suspect]
     Active Substance: IBUPROFEN
     Indication: MYALGIA
     Dosage: UNK
     Route: 065
  3. HYPERICUM [Suspect]
     Active Substance: ST. JOHN^S WORT
     Indication: PRODUCT USED FOR UNKNOWN INDICATION
     Dosage: UNK
     Route: 065
  4. PARACETAMOL [Suspect]
     Active Substance: ACETAMINOPHEN
     Indication: MYALGIA
     Dosage: UNK
     Route: 065
  5. PARACETAMOL [Suspect]
     Active Substance: ACETAMINOPHEN
     Indication: MYALGIA

REACTIONS (15)
  - Chromaturia [Unknown]
  - Yellow skin [Unknown]
  - Pyrexia [Recovered/Resolved]
  - Red blood cell spherocytes present [Unknown]
  - Anaemia [Recovered/Resolved]
  - Jaundice [Recovered/Resolved]
  - Blood lactate dehydrogenase increased [Recovered/Resolved]
  - Myalgia [Unknown]
  - Hypertension [Recovered/Resolved]
  - Autoimmune haemolytic anaemia [Recovered/Resolved]
  - Tachycardia [Recovered/Resolved]
  - Haptoglobin increased [Recovered/Resolved]
  - Asthenia [Recovered/Resolved]
  - Reticulocytosis [Recovered/Resolved]
  - Hyperbilirubinaemia [Recovered/Resolved]
